FAERS Safety Report 17532501 (Version 1)
Quarter: 2020Q1

REPORT INFORMATION
  Report Type: Spontaneous
  Country: US (occurrence: US)
  Receive Date: 20200312
  Receipt Date: 20200312
  Transmission Date: 20200409
  Serious: No
  Sender: FDA-Public Use
  Company Number: US-GLAXOSMITHKLINE-US2020037887

PATIENT
  Sex: Female

DRUGS (1)
  1. TRELEGY ELLIPTA [Suspect]
     Active Substance: FLUTICASONE FUROATE\UMECLIDINIUM BROMIDE\VILANTEROL TRIFENATATE
     Indication: PNEUMONIA
     Dosage: 1 PUFF(S), 1D
     Route: 055

REACTIONS (6)
  - Cough [Not Recovered/Not Resolved]
  - Candida infection [Not Recovered/Not Resolved]
  - Secretion discharge [Unknown]
  - Product use in unapproved indication [Unknown]
  - Dysphonia [Not Recovered/Not Resolved]
  - Drug effective for unapproved indication [Unknown]
